FAERS Safety Report 9003592 (Version 2)
Quarter: 2013Q4

REPORT INFORMATION
  Report Type: Spontaneous
  Country: GB (occurrence: GB)
  Receive Date: 20130108
  Receipt Date: 20131009
  Transmission Date: 20140711
  Serious: Yes (Life-Threatening, Other)
  Sender: FDA-Public Use
  Company Number: GB-AMGEN-GBRSP2013000633

PATIENT
  Age: 75 Year
  Sex: Female
  Weight: 55 kg

DRUGS (5)
  1. PROLIA [Suspect]
     Indication: OSTEOPOROSIS
     Dosage: 1 ML, UNK
     Route: 030
     Dates: start: 20121129
  2. ADCAL D3 [Concomitant]
     Indication: OSTEOPOROSIS
     Dosage: 1 DF, QD
     Dates: start: 20071231
  3. BENDROFLUMETHIAZIDE [Concomitant]
     Indication: HYPERTENSION
     Dosage: 2.5 MG, QD
     Dates: start: 20091109
  4. RAMIPRIL [Concomitant]
     Indication: HYPERTENSION
     Dosage: 10 MG, QD
     Dates: start: 20101203
  5. SIMVASTATIN [Concomitant]
     Indication: HYPERCHOLESTEROLAEMIA
     Dosage: 20 MG, QD
     Dates: start: 19951207

REACTIONS (1)
  - Transient ischaemic attack [Recovered/Resolved]
